FAERS Safety Report 8661317 (Version 3)
Quarter: 2012Q4

REPORT INFORMATION
  Report Type: 
  Country: CA (occurrence: CA)
  Receive Date: 20120712
  Receipt Date: 20121030
  Transmission Date: 20130627
  Serious: Yes (Death, Other)
  Sender: FDA-Public Use
  Company Number: PHHY2011CA96473

PATIENT
  Age: 49 Year
  Sex: Male

DRUGS (1)
  1. ZOMETA [Suspect]
     Indication: LUNG NEOPLASM MALIGNANT
     Dosage: 4 mg, every 4 weeks
     Route: 042
     Dates: start: 20110510, end: 20120417

REACTIONS (6)
  - Death [Fatal]
  - Neoplasm progression [Unknown]
  - Malignant neoplasm progression [Unknown]
  - Bone lesion [Unknown]
  - Blood pressure increased [Unknown]
  - Body temperature decreased [Unknown]
